FAERS Safety Report 5210912-7 (Version None)
Quarter: 2007Q1

REPORT INFORMATION
  Report Type: 
  Country: None (occurrence: None)
  Receive Date: 20070117
  Receipt Date: 20070112
  Transmission Date: 20070707
  Serious: Yes (Hospitalization)
  Sender: FDA-Public Use
  Company Number: US-BOEHRINGER INGELHEIM PHARMACEUTICALS, INC.-2006-BP-13837BP

PATIENT
  Sex: Female

DRUGS (14)
  1. SPIRIVA [Suspect]
     Indication: CHRONIC OBSTRUCTIVE PULMONARY DISEASE
     Route: 055
     Dates: start: 20061116
  2. SPIRIVA [Suspect]
     Indication: ASTHMA
  3. SYNTHROID [Concomitant]
     Indication: HYPOTHYROIDISM
  4. PREDNISONE [Concomitant]
     Indication: ASTHMA
  5. PREDNISONE [Concomitant]
     Indication: CHRONIC OBSTRUCTIVE PULMONARY DISEASE
  6. VASOTEC [Concomitant]
     Indication: MITRAL VALVE PROLAPSE
  7. LIPITOR [Concomitant]
     Indication: BLOOD CHOLESTEROL INCREASED
  8. PLAVIX [Concomitant]
     Indication: MYOCARDIAL INFARCTION
  9. ASMANEX TWISTHALER [Concomitant]
     Indication: CHRONIC OBSTRUCTIVE PULMONARY DISEASE
  10. ASMANEX TWISTHALER [Concomitant]
     Indication: ASTHMA
  11. NEXIUM [Concomitant]
     Indication: GASTROOESOPHAGEAL REFLUX DISEASE
  12. ASPIRIN [Concomitant]
  13. CLARITIN [Concomitant]
  14. AMBIEN CR [Concomitant]

REACTIONS (4)
  - MYOCARDIAL INFARCTION [None]
  - POLLAKIURIA [None]
  - URETHRAL SPASM [None]
  - URINARY TRACT INFECTION [None]
